FAERS Safety Report 16392395 (Version 1)
Quarter: 2019Q2

REPORT INFORMATION
  Report Type: Spontaneous
  Country: CA (occurrence: CA)
  Receive Date: 20190605
  Receipt Date: 20190605
  Transmission Date: 20190711
  Serious: Yes (Hospitalization, Other)
  Sender: FDA-Public Use
  Company Number: CA-AUROBINDO-AUR-APL-2019-030266

PATIENT

DRUGS (3)
  1. CIPROFLOXACIN. [Suspect]
     Active Substance: CIPROFLOXACIN
     Indication: ABSCESS INTESTINAL
     Dosage: 50 MILLIGRAM, (1 EVERY 2 DAYS)
     Route: 048
  2. METRONIDAZOLE. [Suspect]
     Active Substance: METRONIDAZOLE
     Indication: ABSCESS INTESTINAL
     Dosage: 250 MILLIGRAM (EVERY 2 DAYS)
     Route: 065
  3. STELARA [Suspect]
     Active Substance: USTEKINUMAB
     Indication: CROHN^S DISEASE
     Dosage: 90 MILLIGRAM, 1 EVERY 8 WEEKS
     Route: 058

REACTIONS (4)
  - Postoperative ileus [Recovered/Resolved]
  - Haemorrhoids [Recovered/Resolved]
  - Abscess intestinal [Recovered/Resolved]
  - Vertigo [Recovered/Resolved]
